FAERS Safety Report 6682696-7 (Version None)
Quarter: 2010Q2

REPORT INFORMATION
  Report Type: 
  Country: None (occurrence: None)
  Receive Date: 20100413
  Receipt Date: 20100331
  Transmission Date: 20101027
  Serious: Yes (Hospitalization)
  Sender: FDA-Public Use
  Company Number: JPI-P-009638

PATIENT
  Age: 50 Year
  Sex: Male
  Weight: 121.1104 kg

DRUGS (19)
  1. XYREM [Suspect]
     Indication: INSOMNIA
     Dosage: SEE IMAGE
     Route: 048
     Dates: start: 20090101, end: 20090101
  2. XYREM [Suspect]
     Indication: INSOMNIA
     Dosage: SEE IMAGE
     Route: 048
     Dates: start: 20090101, end: 20090101
  3. XYREM [Suspect]
     Indication: INSOMNIA
     Dosage: SEE IMAGE
     Route: 048
     Dates: start: 20091009, end: 20091010
  4. XYREM [Suspect]
     Indication: INSOMNIA
     Dosage: SEE IMAGE
     Route: 048
     Dates: start: 20091201, end: 20091201
  5. XYREM [Suspect]
     Indication: INSOMNIA
     Dosage: SEE IMAGE
     Route: 048
     Dates: start: 20091201, end: 20091201
  6. XYREM [Suspect]
     Indication: INSOMNIA
     Dosage: SEE IMAGE
     Route: 048
     Dates: start: 20091201, end: 20100301
  7. XYREM [Suspect]
     Indication: INSOMNIA
     Dosage: SEE IMAGE
     Route: 048
     Dates: start: 20091014
  8. XYREM [Suspect]
     Indication: INSOMNIA
     Dosage: SEE IMAGE
     Route: 048
     Dates: start: 20091026
  9. XYREM [Suspect]
  10. COLNAZEPAM [Concomitant]
  11. QUINAPRIL HYDROCHLORIDE [Concomitant]
  12. HYDROCHLOROTHIAZIDE [Concomitant]
  13. INDOMETHACIN [Concomitant]
  14. ROSUVASTATIN CALCIUM [Concomitant]
  15. SILDENAFIL CITRATE [Concomitant]
  16. MEN'S ONCE A DAY VITAMINS [Concomitant]
  17. METHYLCELLULOSE, METHYLCELLULOSE [Concomitant]
  18. FIBER [Concomitant]
  19. OMEPRAZOLE [Concomitant]

REACTIONS (11)
  - ANXIETY [None]
  - ASTHENIA [None]
  - DEPRESSION [None]
  - DIZZINESS [None]
  - FATIGUE [None]
  - GAIT DISTURBANCE [None]
  - NAUSEA [None]
  - PANIC ATTACK [None]
  - UNEVALUABLE EVENT [None]
  - VISION BLURRED [None]
  - WEIGHT DECREASED [None]
